FAERS Safety Report 10962309 (Version 1)
Quarter: 2015Q1

REPORT INFORMATION
  Report Type: Spontaneous
  Country: MX (occurrence: MX)
  Receive Date: 20150327
  Receipt Date: 20150327
  Transmission Date: 20150721
  Serious: Yes (Other)
  Sender: FDA-Public Use
  Company Number: MX-AMGEN-MEXSP2015028003

PATIENT
  Age: 90 Year
  Sex: Male

DRUGS (1)
  1. PROLIA [Suspect]
     Active Substance: DENOSUMAB
     Indication: PROSTATE CANCER METASTATIC
     Dosage: 60 MG, Q4WK
     Route: 065
     Dates: start: 201503

REACTIONS (6)
  - Blood uric acid increased [Unknown]
  - Blood potassium increased [Unknown]
  - Inappropriate schedule of drug administration [Unknown]
  - Renal failure [Unknown]
  - Hallucination [Recovered/Resolved]
  - Blood creatinine increased [Unknown]
